FAERS Safety Report 18104307 (Version 2)
Quarter: 2020Q3

REPORT INFORMATION
  Report Type: Report from Study
  Country: FR (occurrence: FR)
  Receive Date: 20200803
  Receipt Date: 20200814
  Transmission Date: 20201103
  Serious: Yes (Hospitalization)
  Sender: FDA-Public Use
  Company Number: FR-EXELIXIS-XL18420031578

PATIENT
  Age: 73 Year
  Sex: Male

DRUGS (16)
  1. OMEPRAZOLE. [Concomitant]
     Active Substance: OMEPRAZOLE
  2. SMECTA [Concomitant]
     Active Substance: MONTMORILLONITE
  3. INSULIN [Concomitant]
     Active Substance: INSULIN NOS
  4. ATEZOLIZUMAB. [Suspect]
     Active Substance: ATEZOLIZUMAB
     Indication: HEPATOCELLULAR CARCINOMA
     Dosage: 1200 MG, Q3WEEKS
     Route: 042
     Dates: start: 20190723
  5. FLUDEX [Concomitant]
  6. TWYNSTA [Concomitant]
     Active Substance: AMLODIPINE BESYLATE\TELMISARTAN
  7. DEXERYL [Concomitant]
  8. MEPILEX [Concomitant]
     Active Substance: SILICON
  9. IMOVANE [Concomitant]
     Active Substance: ZOPICLONE
  10. PARACETAMOL [Concomitant]
     Active Substance: ACETAMINOPHEN
  11. SPASFON [Concomitant]
  12. XL184 [Suspect]
     Active Substance: CABOZANTINIB
     Indication: HEPATOCELLULAR CARCINOMA
     Dosage: 40 MG, QD
     Route: 048
     Dates: start: 20190723
  13. UREA. [Concomitant]
     Active Substance: UREA
  14. ALGOSTERIL [Concomitant]
  15. HYPERIUM [Concomitant]
     Active Substance: RILMENIDINE PHOSPHATE
  16. IMODIUM [Concomitant]
     Active Substance: LOPERAMIDE HYDROCHLORIDE

REACTIONS (1)
  - General physical condition abnormal [Not Recovered/Not Resolved]

NARRATIVE: CASE EVENT DATE: 20200724
